FAERS Safety Report 5028810-0 (Version None)
Quarter: 2006Q2

REPORT INFORMATION
  Report Type: 
  Country: None (occurrence: None)
  Receive Date: 20060501
  Receipt Date: 20060309
  Transmission Date: 20061013
  Serious: No
  Sender: FDA-Public Use
  Company Number: 200612666US

PATIENT
  Age: 34 Year
  Sex: Female

DRUGS (3)
  1. KETEK [Suspect]
     Indication: BRONCHITIS
  2. KETEK [Suspect]
     Indication: ILL-DEFINED DISORDER
  3. KETEK [Suspect]
     Indication: PYREXIA

REACTIONS (1)
  - DRUG INEFFECTIVE [None]
